FAERS Safety Report 20173785 (Version 2)
Quarter: 2021Q4

REPORT INFORMATION
  Report Type: Other
  Country: GB (occurrence: GB)
  Receive Date: 20211213
  Receipt Date: 20211223
  Transmission Date: 20220303
  Serious: Yes (Hospitalization, Other)
  Sender: FDA-Public Use
  Company Number: GB-CELLTRION INC.-2021GB016674

PATIENT

DRUGS (8)
  1. INFLIXIMAB [Suspect]
     Active Substance: INFLIXIMAB
     Indication: Product used for unknown indication
     Dosage: PHARMACEUTICAL DOSE FORM: 16
     Dates: start: 20210922
  2. ADALIMUMAB [Concomitant]
     Active Substance: ADALIMUMAB
     Indication: Ill-defined disorder
     Dosage: 40MG S/C EVERY 2 WEEKS
     Dates: start: 20210923
  3. ADCAL [Concomitant]
     Dosage: TAKE ONE TABLET TWICE A DAY
     Dates: start: 20210122
  4. FOLIC ACID [Concomitant]
     Active Substance: FOLIC ACID
     Dosage: TAKE ONE TABLET EACH DAY
     Dates: start: 20210122
  5. HYDROXOCOBALAMIN [Concomitant]
     Active Substance: HYDROXOCOBALAMIN
     Dosage: INITIALLY 1MG TO BE ADMINISTERED THREE TIMES A ...
     Dates: start: 20210122
  6. MERCAPTOPURINE [Concomitant]
     Active Substance: MERCAPTOPURINE
     Dosage: TAKE ONE TABLET DAILY
     Dates: start: 20210426
  7. NITROFURANTOIN [Concomitant]
     Active Substance: NITROFURANTOIN
     Dosage: UNCOMPLICATED UTI WOMEN- TAKE ONE CAPSULE TWICE...
     Dates: start: 20211122, end: 20211125
  8. MINERAL OIL\PARAFFIN [Concomitant]
     Active Substance: MINERAL OIL\PARAFFIN
     Dosage: USE AS DIRECTED
     Dates: start: 20181212

REACTIONS (5)
  - Hospitalisation [Unknown]
  - Throat tightness [Unknown]
  - Dyspnoea [Recovered/Resolved]
  - Chills [Unknown]
  - Palpitations [Unknown]

NARRATIVE: CASE EVENT DATE: 20210923
